FAERS Safety Report 5484671-7 (Version None)
Quarter: 2007Q4

REPORT INFORMATION
  Report Type: 
  Country: None (occurrence: None)
  Receive Date: 20071012
  Receipt Date: 20071003
  Transmission Date: 20080405
  Serious: Yes (Other)
  Sender: FDA-Public Use
  Company Number: FR-PFIZER INC-2007075231

PATIENT
  Sex: Female
  Weight: 56 kg

DRUGS (6)
  1. LYRICA [Suspect]
     Indication: CERVICAL ROOT PAIN
  2. ESCITALOPRAM OXALATE [Concomitant]
  3. BROMAZEPAM [Concomitant]
  4. TRAMADOL HYDROCHLORIDE AND ACETAMINOPHEN [Concomitant]
  5. CYAMEMAZINE [Concomitant]
  6. LANSOPRAZOLE [Concomitant]

REACTIONS (2)
  - HEPATITIS [None]
  - PANCREATIC CARCINOMA [None]
